FAERS Safety Report 9632209 (Version 1)
Quarter: 2013Q4

REPORT INFORMATION
  Report Type: Spontaneous
  Country: FR (occurrence: FR)
  Receive Date: 20131018
  Receipt Date: 20131018
  Transmission Date: 20140711
  Serious: Yes (Hospitalization)
  Sender: FDA-Public Use
  Company Number: FR-SA-2013SA103055

PATIENT
  Age: 95 Year
  Sex: Female

DRUGS (3)
  1. LASILIX [Suspect]
     Indication: PRODUCT USED FOR UNKNOWN INDICATION
     Route: 048
     Dates: end: 20131002
  2. MEDIATENSYL [Suspect]
     Indication: PRODUCT USED FOR UNKNOWN INDICATION
     Route: 048
     Dates: end: 20131002
  3. TRIATEC [Concomitant]
     Route: 048

REACTIONS (2)
  - Fall [Recovered/Resolved]
  - Orthostatic hypotension [Recovered/Resolved]
